FAERS Safety Report 7263227-X (Version None)
Quarter: 2011Q1

REPORT INFORMATION
  Report Type: 
  Country: None (occurrence: None)
  Receive Date: 20110130
  Receipt Date: 20101013
  Transmission Date: 20110831
  Serious: Yes (Hospitalization)
  Sender: FDA-Public Use
  Company Number: US-ABBOTT-10P-163-0678231-00

PATIENT
  Sex: Female
  Weight: 68.1 kg

DRUGS (2)
  1. HUMIRA [Suspect]
     Dates: start: 20101001
  2. HUMIRA [Suspect]
     Indication: RHEUMATOID ARTHRITIS
     Dates: start: 20100701

REACTIONS (9)
  - PYREXIA [None]
  - LARYNGITIS [None]
  - INJECTION SITE ERYTHEMA [None]
  - INFLUENZA [None]
  - INJECTION SITE REACTION [None]
  - SINUSITIS [None]
  - INJECTION SITE WARMTH [None]
  - COUGH [None]
  - INJECTION SITE PAPULE [None]
